FAERS Safety Report 9332416 (Version 1)
Quarter: 2013Q2

REPORT INFORMATION
  Report Type: Spontaneous
  Country: CH (occurrence: CH)
  Receive Date: 20130606
  Receipt Date: 20130606
  Transmission Date: 20140414
  Serious: Yes (Other)
  Sender: FDA-Public Use
  Company Number: CH-ROCHE-1224368

PATIENT
  Age: 34 Year
  Sex: Female

DRUGS (2)
  1. BONVIVA [Suspect]
     Indication: OSTEOPOROSIS
     Route: 042
     Dates: start: 2011, end: 201303
  2. IMPLANON [Concomitant]
     Indication: CONTRACEPTION

REACTIONS (2)
  - Pregnancy [Unknown]
  - Abortion spontaneous [Unknown]
